FAERS Safety Report 18527507 (Version 3)
Quarter: 2021Q1

REPORT INFORMATION
  Report Type: Spontaneous
  Country: US (occurrence: US)
  Receive Date: 20201120
  Receipt Date: 20210312
  Transmission Date: 20210419
  Serious: Yes (Hospitalization)
  Sender: FDA-Public Use
  Company Number: US-FRESENIUS KABI-FK202012223

PATIENT
  Age: 62 Year
  Sex: Male

DRUGS (6)
  1. GILTERITINIB [Suspect]
     Active Substance: GILTERITINIB
     Indication: ACUTE MYELOID LEUKAEMIA
     Dosage: PRODUCT NAME: ASP2215 (GITTERITINIB)
     Route: 065
     Dates: start: 20201014, end: 20201018
  2. CYTARABINE (MANUFACTURER UNKNOWN) [Suspect]
     Active Substance: CYTARABINE
     Indication: ACUTE MYELOID LEUKAEMIA
     Route: 065
     Dates: start: 20201007, end: 20201012
  3. GILTERITINIB [Suspect]
     Active Substance: GILTERITINIB
     Dosage: PRODUCT NAME: ASP2215 (GITTERITINIB)?ONGOING?THE LAST DOSE DATE OF GILTERITINIB WAS REPORTED AS 27/O
     Route: 065
     Dates: start: 20201014
  4. CYTARABINE (MANUFACTURER UNKNOWN) [Suspect]
     Active Substance: CYTARABINE
     Route: 065
     Dates: start: 20201007, end: 20201007
  5. CYTARABINE (MANUFACTURER UNKNOWN) [Suspect]
     Active Substance: CYTARABINE
     Dosage: ONGOING?THE LAST DOSE DATE OF CYTARABINE WAS REPORTED AS 13/OCT/2020
     Route: 065
     Dates: start: 20201013
  6. CYTARABINE (MANUFACTURER UNKNOWN) [Suspect]
     Active Substance: CYTARABINE
     Route: 065
     Dates: start: 20201008, end: 20201012

REACTIONS (1)
  - C-reactive protein increased [Recovered/Resolved]

NARRATIVE: CASE EVENT DATE: 20201117
